FAERS Safety Report 12666261 (Version 1)
Quarter: 2016Q3

REPORT INFORMATION
  Report Type: Spontaneous
  Country: US (occurrence: US)
  Receive Date: 20160818
  Receipt Date: 20160818
  Transmission Date: 20161109
  Serious: No
  Sender: FDA-Public Use
  Company Number: US-JAZZ-2016-US-005698

PATIENT
  Sex: Female

DRUGS (32)
  1. XYREM [Suspect]
     Active Substance: SODIUM OXYBATE
     Dosage: DOSE ADJUSTMENTS
     Route: 048
  2. ZOLPIDEM TARTRATE. [Concomitant]
     Active Substance: ZOLPIDEM TARTRATE
  3. SOMA [Concomitant]
     Active Substance: CARISOPRODOL
  4. AMBIEN [Concomitant]
     Active Substance: ZOLPIDEM TARTRATE
  5. BENADRYL [Concomitant]
     Active Substance: DIPHENHYDRAMINE HYDROCHLORIDE
  6. NALTREXONE [Concomitant]
     Active Substance: NALTREXONE
  7. AMITIZA [Concomitant]
     Active Substance: LUBIPROSTONE
  8. CARAFATE [Concomitant]
     Active Substance: SUCRALFATE
  9. DEXILANT DR [Concomitant]
  10. ADVAIR HFA [Concomitant]
     Active Substance: FLUTICASONE PROPIONATE\SALMETEROL XINAFOATE
  11. CLONAZEPAM. [Concomitant]
     Active Substance: CLONAZEPAM
  12. NORCO [Concomitant]
     Active Substance: ACETAMINOPHEN\HYDROCODONE BITARTRATE
  13. OXYCODONE HCL IR [Concomitant]
  14. PRAZOSIN [Concomitant]
     Active Substance: PRAZOSIN
  15. MULTIVITAMIN [Concomitant]
     Active Substance: VITAMINS
  16. TRAMADOL HCL ER [Concomitant]
  17. SPIRONOLACTONE. [Concomitant]
     Active Substance: SPIRONOLACTONE
  18. XANAX [Concomitant]
     Active Substance: ALPRAZOLAM
  19. LINZESS [Concomitant]
     Active Substance: LINACLOTIDE
  20. GABAPENTIN. [Concomitant]
     Active Substance: GABAPENTIN
  21. ARMOUR THYROID [Concomitant]
     Active Substance: THYROID, PORCINE
  22. URSODIOL. [Concomitant]
     Active Substance: URSODIOL
  23. DARVOCET [Concomitant]
     Active Substance: ACETAMINOPHEN\PROPOXYPHENE HYDROCHLORIDE
  24. DOXEPIN [Concomitant]
     Active Substance: DOXEPIN
  25. XYREM [Suspect]
     Active Substance: SODIUM OXYBATE
     Indication: SLEEP DISORDER
     Dosage: 4.5 G, BID
     Route: 048
     Dates: start: 200710, end: 200804
  26. PERCOCET [Concomitant]
     Active Substance: ACETAMINOPHEN\OXYCODONE HYDROCHLORIDE
  27. MIRTAZAPINE. [Concomitant]
     Active Substance: MIRTAZAPINE
  28. XYREM [Suspect]
     Active Substance: SODIUM OXYBATE
     Dosage: 4.5 G, BID
     Route: 048
     Dates: start: 201407
  29. ALPRAZOLAM. [Concomitant]
     Active Substance: ALPRAZOLAM
  30. SONATA [Concomitant]
     Active Substance: ZALEPLON
  31. DIGESTIVE ENZYMES [Concomitant]
     Active Substance: UNSPECIFIED INGREDIENT
  32. TIZANIDINE HCL [Concomitant]
     Active Substance: TIZANIDINE HYDROCHLORIDE

REACTIONS (3)
  - Dyspepsia [Unknown]
  - Injury [Unknown]
  - Vagus nerve disorder [Unknown]

NARRATIVE: CASE EVENT DATE: 2009
